FAERS Safety Report 4362782-7 (Version None)
Quarter: 2004Q2

REPORT INFORMATION
  Report Type: 
  Country: None (occurrence: None)
  Receive Date: 20040517
  Receipt Date: 20040413
  Transmission Date: 20050107
  Serious: No
  Sender: FDA-Public Use
  Company Number: S04-USA-02053-01

PATIENT
  Age: 73 Year
  Sex: Female

DRUGS (9)
  1. NAMENDA [Suspect]
     Indication: DEMENTIA ALZHEIMER'S TYPE
     Dosage: 15 MG QD PO
     Route: 048
     Dates: start: 20040409
  2. NAMENDA [Suspect]
     Indication: DEMENTIA ALZHEIMER'S TYPE
     Dosage: 5 MG QD PO
     Route: 048
     Dates: start: 20040326, end: 20040401
  3. NAMENDA [Suspect]
     Indication: DEMENTIA ALZHEIMER'S TYPE
     Dosage: 10 MG QD PO
     Route: 048
     Dates: start: 20040402, end: 20040408
  4. LORAZEPAM [Concomitant]
  5. INSULIN [Concomitant]
  6. EVISTA [Concomitant]
  7. NORTRIPTYLINE HCL [Concomitant]
  8. DEXTROL (TOLTERODINE L-TARTRATE) [Concomitant]
  9. EYE DROPS (NOS) [Concomitant]

REACTIONS (2)
  - CONFUSIONAL STATE [None]
  - DIZZINESS [None]
